FAERS Safety Report 11539439 (Version 2)
Quarter: 2016Q1

REPORT INFORMATION
  Report Type: Report from Study
  Country: EG (occurrence: EG)
  Receive Date: 20150923
  Receipt Date: 20160211
  Transmission Date: 20160525
  Serious: Yes (Hospitalization)
  Sender: FDA-Public Use
  Company Number: EG-NOVOPROD-464180

PATIENT
  Sex: Male

DRUGS (6)
  1. TRENTAL [Concomitant]
     Active Substance: PENTOXIFYLLINE
     Dosage: UNK
     Route: 065
     Dates: start: 2015
  2. OXITROPIL [Concomitant]
     Dosage: UNK
     Route: 065
     Dates: start: 2015
  3. DIMRA [Concomitant]
     Dosage: UNK
     Route: 065
     Dates: start: 2015
  4. ARCALION                           /01246001/ [Concomitant]
     Dosage: UNK
     Route: 065
     Dates: start: 2015
  5. MIXTARD HUMAN 70/30 [Suspect]
     Active Substance: INSULIN HUMAN
     Indication: PRODUCT USED FOR UNKNOWN INDICATION
     Dosage: STARTED 7 YEARS AGO
     Route: 065
     Dates: end: 20150914
  6. LIVOBION                           /02916801/ [Concomitant]
     Dosage: UNK
     Route: 065
     Dates: start: 2015

REACTIONS (1)
  - Cerebrovascular accident [Unknown]

NARRATIVE: CASE EVENT DATE: 2015
